FAERS Safety Report 18666498 (Version 1)
Quarter: 2020Q4

REPORT INFORMATION
  Report Type: Report from Study
  Country: NL (occurrence: NL)
  Receive Date: 20201227
  Receipt Date: 20201227
  Transmission Date: 20210114
  Serious: Yes (Hospitalization, Other)
  Sender: FDA-Public Use
  Company Number: NVSC2020NL338752

PATIENT
  Age: 1 Year
  Sex: Female
  Weight: 10.6 kg

DRUGS (7)
  1. DABRAFENIB [Suspect]
     Active Substance: DABRAFENIB
     Dosage: UNK
     Route: 048
     Dates: start: 20201209
  2. DABRAFENIB [Suspect]
     Active Substance: DABRAFENIB
     Indication: LANGERHANS^ CELL HISTIOCYTOSIS
     Dosage: 30 MG, BID
     Route: 048
     Dates: start: 20201120, end: 20201208
  3. SOFRADEX [Concomitant]
     Active Substance: DEXAMETHASONE\FRAMYCETIN SULFATE\GRAMICIDIN
     Indication: EAR INFECTION
     Dosage: 3 DRP, TID
     Route: 065
     Dates: start: 20201103, end: 20201208
  4. TRAMETINIB [Suspect]
     Active Substance: TRAMETINIB
     Indication: LANGERHANS^ CELL HISTIOCYTOSIS
     Dosage: 0.375 MG, QD
     Route: 048
     Dates: start: 20201120, end: 20201208
  5. POTASSIUM CHLORIDE. [Concomitant]
     Active Substance: POTASSIUM CHLORIDE
     Indication: HYPOKALAEMIA
     Dosage: 5 MMOL, TID
     Route: 065
     Dates: start: 20201123, end: 20201208
  6. AMBISOME [Concomitant]
     Active Substance: AMPHOTERICIN B
     Indication: BRONCHOPULMONARY ASPERGILLOSIS
     Dosage: 33 MG, QD
     Route: 065
     Dates: start: 20201102, end: 20201208
  7. ISAVUCONAZOL [Concomitant]
     Indication: BRONCHOPULMONARY ASPERGILLOSIS
     Dosage: 100 MG, QD
     Route: 065
     Dates: start: 20201121, end: 20201208

REACTIONS (5)
  - Gastrointestinal haemorrhage [Unknown]
  - Melaena [Recovered/Resolved]
  - Faeces discoloured [Unknown]
  - Laboratory test abnormal [Unknown]
  - Haemoglobin decreased [Unknown]

NARRATIVE: CASE EVENT DATE: 20201208
